FAERS Safety Report 6728744-7 (Version None)
Quarter: 2010Q2

REPORT INFORMATION
  Report Type: 
  Country: None (occurrence: None)
  Receive Date: 20100517
  Receipt Date: 20100512
  Transmission Date: 20101027
  Serious: Yes (Death)
  Sender: FDA-Public Use
  Company Number: US-GILEAD-2010-0028027

PATIENT
  Sex: Female

DRUGS (17)
  1. LETAIRIS [Suspect]
     Indication: PULMONARY ARTERIAL HYPERTENSION
     Route: 048
     Dates: start: 20100127, end: 20100311
  2. PLAVIX [Concomitant]
  3. PROCARDIA [Concomitant]
  4. FLEXERIL [Concomitant]
  5. ISOSORBIDE DINITRATE [Concomitant]
  6. OXYCODONE [Concomitant]
  7. HYDROCODONE BITARTRATE [Concomitant]
  8. ALBUTEROL [Concomitant]
  9. AVAPRO [Concomitant]
  10. ATROVENT [Concomitant]
  11. MUCINEX [Concomitant]
  12. ROBITUSSIN DM [Concomitant]
  13. PROTONIX [Concomitant]
  14. LIPITOR [Concomitant]
  15. HUMULIN R [Concomitant]
  16. GLUCOSAMINE + CHONDROITIN [Concomitant]
  17. VITAMIN B COMPLEX CAP [Concomitant]

REACTIONS (1)
  - DEATH [None]
